FAERS Safety Report 4966781-3 (Version None)
Quarter: 2006Q2

REPORT INFORMATION
  Report Type: 
  Country: None (occurrence: None)
  Receive Date: 20060407
  Receipt Date: 20050429
  Transmission Date: 20061013
  Serious: Yes (Hospitalization, Disabling, Other)
  Sender: FDA-Public Use
  Company Number: US-MERCK-0505USA00395

PATIENT
  Age: 58 Year
  Sex: Male
  Weight: 95 kg

DRUGS (1)
  1. VIOXX [Suspect]
     Indication: ARTHRALGIA
     Route: 048
     Dates: start: 20000720, end: 20040930

REACTIONS (5)
  - BONE DISORDER [None]
  - CARDIAC DISORDER [None]
  - CARTILAGE INJURY [None]
  - CEREBROVASCULAR ACCIDENT [None]
  - PULMONARY FIBROSIS [None]
